FAERS Safety Report 4775240-2 (Version None)
Quarter: 2005Q3

REPORT INFORMATION
  Report Type: 
  Country: None (occurrence: None)
  Receive Date: 20050921
  Receipt Date: 20050512
  Transmission Date: 20060218
  Serious: Yes (Death, Hospitalization, Disabling)
  Sender: FDA-Public Use
  Company Number: IE-MERCK-0505GBR00115

PATIENT
  Age: 59 Year
  Sex: Male
  Weight: 74 kg

DRUGS (5)
  1. CANCIDAS [Suspect]
     Indication: ASPERGILLOSIS
     Route: 042
     Dates: start: 20050506, end: 20050510
  2. HYDROCORTISONE [Concomitant]
     Indication: PNEUMOCYSTIS JIROVECI INFECTION
     Route: 042
     Dates: start: 20050421
  3. SULFAMETHOXAZOLE AND TRIMETHOPRIM [Concomitant]
     Indication: PNEUMOCYSTIS JIROVECI INFECTION
     Route: 042
     Dates: start: 20050420, end: 20050509
  4. ACYCLOVIR [Concomitant]
     Indication: INFECTION
     Route: 042
     Dates: start: 20050417, end: 20050422
  5. CANCIDAS [Suspect]
     Route: 042
     Dates: start: 20050420, end: 20050505

REACTIONS (4)
  - BLOOD ALKALINE PHOSPHATASE INCREASED [None]
  - BLOOD BILIRUBIN INCREASED [None]
  - BONE MARROW DEPRESSION [None]
  - LEUKAEMIA [None]
